FAERS Safety Report 18202087 (Version 2)
Quarter: 2020Q4

REPORT INFORMATION
  Report Type: Report from Study
  Country: US (occurrence: US)
  Receive Date: 20200827
  Receipt Date: 20201001
  Transmission Date: 20210113
  Serious: Yes (Hospitalization, Other)
  Sender: FDA-Public Use
  Company Number: US-EISAI MEDICAL RESEARCH-EC-2020-078737

PATIENT
  Age: 70 Year
  Sex: Male

DRUGS (1)
  1. LENVIMA [Suspect]
     Active Substance: LENVATINIB
     Indication: RENAL CANCER
     Route: 048
     Dates: start: 20200724, end: 20200812

REACTIONS (19)
  - Weight decreased [Unknown]
  - Dry mouth [Unknown]
  - Decreased appetite [Unknown]
  - Muscle atrophy [Unknown]
  - Hypotension [Recovering/Resolving]
  - Alopecia [Unknown]
  - Oedema peripheral [Not Recovered/Not Resolved]
  - Cardiac arrest [Recovering/Resolving]
  - Vomiting [Unknown]
  - Pruritus [Unknown]
  - Gait inability [Not Recovered/Not Resolved]
  - Abdominal pain upper [Unknown]
  - Stomatitis [Unknown]
  - Dry skin [Unknown]
  - Ageusia [Unknown]
  - Nausea [Unknown]
  - Diarrhoea [Unknown]
  - Fatigue [Unknown]
  - Urinary retention [Unknown]

NARRATIVE: CASE EVENT DATE: 2020
